FAERS Safety Report 25281983 (Version 1)
Quarter: 2025Q2

REPORT INFORMATION
  Report Type: Spontaneous
  Country: AU (occurrence: AU)
  Receive Date: 20250508
  Receipt Date: 20250508
  Transmission Date: 20250716
  Serious: Yes (Death)
  Sender: TAKEDA
  Company Number: AU-TAKEDA-2025TUS043430

PATIENT
  Age: 44 Year
  Sex: Female

DRUGS (1)
  1. VYVANSE [Suspect]
     Active Substance: LISDEXAMFETAMINE DIMESYLATE
     Indication: Product used for unknown indication

REACTIONS (4)
  - Asthenia [Fatal]
  - Brain fog [Recovered/Resolved]
  - Disturbance in attention [Unknown]
  - Hypotension [Recovered/Resolved]
